FAERS Safety Report 9294516 (Version 2)
Quarter: 2013Q3

REPORT INFORMATION
  Report Type: Spontaneous
  Country: TR (occurrence: TR)
  Receive Date: 20130517
  Receipt Date: 20130729
  Transmission Date: 20140515
  Serious: Yes (Death)
  Sender: FDA-Public Use
  Company Number: TR-OTSUKA-JP-2013-11336

PATIENT
  Age: 36 Year
  Sex: Male
  Weight: 85 kg

DRUGS (1)
  1. SAMSCA [Suspect]
     Indication: INAPPROPRIATE ANTIDIURETIC HORMONE SECRETION
     Dosage: UNK
     Route: 048
     Dates: start: 20130412, end: 20130413

REACTIONS (3)
  - Hepatic failure [Fatal]
  - Renal failure acute [Fatal]
  - Blood sodium decreased [Fatal]
